FAERS Safety Report 8428313-7 (Version None)
Quarter: 2012Q2

REPORT INFORMATION
  Report Type: 
  Country: None (occurrence: None)
  Receive Date: 20120611
  Receipt Date: 20120531
  Transmission Date: 20120825
  Serious: Yes (Death, Hospitalization, Other)
  Sender: FDA-Public Use
  Company Number: JP-BRISTOL-MYERS SQUIBB COMPANY-16671463

PATIENT
  Age: 40 Year
  Sex: Male

DRUGS (9)
  1. RISPERIDONE [Concomitant]
     Dosage: TAB
     Dates: start: 20090715, end: 20090721
  2. ALLOPURINOL [Concomitant]
     Dosage: TABS
     Dates: end: 20090721
  3. ABILIFY [Suspect]
     Indication: SCHIZOPHRENIA
     Route: 048
     Dates: start: 20090624, end: 20090721
  4. LEVOTOMIN [Concomitant]
     Dosage: TAB
     Dates: start: 20090610, end: 20090623
  5. HALOPERIDOL [Concomitant]
     Dosage: TAB
     Dates: start: 20090610, end: 20090721
  6. MAGNESIUM OXIDE [Concomitant]
     Dates: end: 20090721
  7. TASMOLIN [Concomitant]
     Dosage: TAB
     Dates: start: 20090610, end: 20090721
  8. SEROQUEL [Concomitant]
     Dosage: TABS
     Dates: start: 20090610, end: 20090721
  9. LORELCO [Concomitant]
     Dosage: TAB
     Dates: end: 20090721

REACTIONS (3)
  - DEATH [None]
  - ABNORMAL BEHAVIOUR [None]
  - AGGRESSION [None]
